FAERS Safety Report 7561280-7 (Version None)
Quarter: 2011Q2

REPORT INFORMATION
  Report Type: 
  Country: None (occurrence: None)
  Receive Date: 20110621
  Receipt Date: 20100611
  Transmission Date: 20111010
  Serious: No
  Sender: FDA-Public Use
  Company Number: US-ASTRAZENECA-2010SE27407

PATIENT
  Age: 53 Year
  Sex: Male
  Weight: 83.9 kg

DRUGS (12)
  1. ALLEGRA [Concomitant]
  2. PROVENTIL [Concomitant]
  3. STEROID SHOTS [Concomitant]
  4. TRAMADOL HCL [Concomitant]
  5. SYMBICORT [Suspect]
     Indication: CHRONIC OBSTRUCTIVE PULMONARY DISEASE
     Dosage: ONE PUFF QD OR BID.
     Route: 055
     Dates: start: 20100301
  6. METOPROLOL TARTRATE [Concomitant]
  7. ASPIRIN [Concomitant]
  8. TESSALON [Concomitant]
  9. DRISDOL [Concomitant]
     Dosage: 50000
  10. PULMICORT FLEXHALER [Suspect]
     Indication: CHRONIC OBSTRUCTIVE PULMONARY DISEASE
     Dosage: ONE PUFF, TWO TIMES A DAY.
     Route: 055
     Dates: start: 20100301
  11. CRESTOR [Concomitant]
     Route: 048
     Dates: start: 20100521
  12. SPIRIVA [Concomitant]

REACTIONS (3)
  - EPISTAXIS [None]
  - DIZZINESS [None]
  - CARDIAC DISORDER [None]
